FAERS Safety Report 19731805 (Version 1)
Quarter: 2021Q3

REPORT INFORMATION
  Report Type: Spontaneous
  Country: US (occurrence: US)
  Receive Date: 20210819
  Receipt Date: 20210819
  Transmission Date: 20211014
  Serious: Yes (Other)
  Sender: FDA-Public Use
  Company Number: None

PATIENT
  Age: 55 Year
  Sex: Female

DRUGS (10)
  1. ACYCLOVIR. [Concomitant]
     Active Substance: ACYCLOVIR
  2. K?TAB [Concomitant]
     Active Substance: POTASSIUM CHLORIDE
  3. BACTRIM [Concomitant]
     Active Substance: SULFAMETHOXAZOLE\TRIMETHOPRIM
  4. MELATONIN [Concomitant]
     Active Substance: MELATONIN
  5. METOPROLOL. [Concomitant]
     Active Substance: METOPROLOL
     Route: 048
     Dates: start: 20200824
  6. OMEPRAZOLE. [Concomitant]
     Active Substance: OMEPRAZOLE
  7. PAROXETINE. [Concomitant]
     Active Substance: PAROXETINE
  8. DARATUMUMAB [Concomitant]
     Active Substance: DARATUMUMAB
  9. REVLIMID [Suspect]
     Active Substance: LENALIDOMIDE
     Indication: PLASMA CELL MYELOMA
     Route: 048
     Dates: start: 20200824
  10. CETIRIZINE [Concomitant]
     Active Substance: CETIRIZINE HYDROCHLORIDE

REACTIONS (2)
  - Deep vein thrombosis [None]
  - Liver function test increased [None]

NARRATIVE: CASE EVENT DATE: 20210628
